FAERS Safety Report 4941802-2 (Version None)
Quarter: 2006Q1

REPORT INFORMATION
  Report Type: 
  Country: None (occurrence: None)
  Receive Date: 20060308
  Receipt Date: 20060228
  Transmission Date: 20060701
  Serious: Yes (Death)
  Sender: FDA-Public Use
  Company Number: 2005S1000246

PATIENT
  Age: 68 Year
  Sex: Male

DRUGS (1)
  1. CUBICIN [Suspect]
     Indication: ENTEROCOCCAL BACTERAEMIA
     Dosage: 6 MG;KG

REACTIONS (1)
  - BRONCHOPULMONARY ASPERGILLOSIS [None]
